FAERS Safety Report 21736509 (Version 1)
Quarter: 2022Q4

REPORT INFORMATION
  Report Type: Spontaneous
  Country: CN (occurrence: CN)
  Receive Date: 20221215
  Receipt Date: 20221215
  Transmission Date: 20230113
  Serious: Yes (Other)
  Sender: FDA-Public Use
  Company Number: None

PATIENT
  Age: 46 Year
  Sex: Female
  Weight: 75 kg

DRUGS (4)
  1. CYCLOPHOSPHAMIDE [Suspect]
     Active Substance: CYCLOPHOSPHAMIDE
     Indication: Breast cancer female
     Dosage: 0.8 G, QD, DOSAGE FORM: INJECTION, DILUTED WITH 0.9% SODIUM CHLORIDE 250 ML, AT 09:00 (4TH STAGE CHE
     Route: 041
     Dates: start: 20221204, end: 20221204
  2. SODIUM CHLORIDE [Suspect]
     Active Substance: SODIUM CHLORIDE
     Indication: Medication dilution
     Dosage: 250 ML, QD, USED TO DILUTE CYCLOPHOSPHAMIDE 0.8 G, AT 09:00 (4TH STAGE CHEMOTHERAPY)
     Route: 041
     Dates: start: 20221204, end: 20221204
  3. DEXTROSE MONOHYDRATE [Suspect]
     Active Substance: DEXTROSE MONOHYDRATE
     Indication: Medication dilution
     Dosage: 250 ML, QD, USED TO DILUTE EPIRUBICIN 140 MG, AT: 09:00 (4TH STAGE CHEMOTHERAPY)
     Route: 041
     Dates: start: 20221204, end: 20221204
  4. EPIRUBICIN HYDROCHLORIDE [Suspect]
     Active Substance: EPIRUBICIN HYDROCHLORIDE
     Indication: Breast cancer female
     Dosage: 140 MG, QD, DILUTED WITH 5% GLUCOSE 250 ML, AT: 09:00 (4TH STAGE CHEMOTHERAPY)
     Route: 041
     Dates: start: 20221204, end: 20221204

REACTIONS (2)
  - Nausea [Recovered/Resolved]
  - Vomiting [Recovered/Resolved]

NARRATIVE: CASE EVENT DATE: 20221204
